FAERS Safety Report 11228569 (Version 6)
Quarter: 2016Q3

REPORT INFORMATION
  Report Type: Report from Study
  Country: MX (occurrence: MX)
  Receive Date: 20150630
  Receipt Date: 20160721
  Transmission Date: 20161109
  Serious: Yes (Life-Threatening, Other)
  Sender: FDA-Public Use
  Company Number: MX-PFIZER INC-2015215971

PATIENT
  Age: 76 Year
  Sex: Female
  Weight: 65 kg

DRUGS (18)
  1. AMLODIPINE [Concomitant]
     Active Substance: AMLODIPINE BESYLATE
     Indication: HYPERTENSION
     Dosage: 2.5 MG, DAILY
     Route: 048
     Dates: start: 20150526
  2. METOPROLOL. [Concomitant]
     Active Substance: METOPROLOL
     Indication: HYPERTENSION
     Dosage: 25 MG, DAILY
     Route: 048
     Dates: start: 20150526
  3. TOFACITINIB CITRATE [Suspect]
     Active Substance: TOFACITINIB CITRATE
     Indication: RHEUMATOID ARTHRITIS
     Dosage: 5 MG, 2X/DAY
     Route: 048
     Dates: start: 20071108, end: 20150513
  4. METHOTREXATE SODIUM. [Suspect]
     Active Substance: METHOTREXATE SODIUM
     Indication: RHEUMATOID ARTHRITIS
     Dosage: MULTIPLE MODIFICATIONS IN DOSE
     Dates: start: 2002
  5. LOPERAMIDE [Concomitant]
     Active Substance: LOPERAMIDE
     Indication: IRRITABLE BOWEL SYNDROME
     Dosage: 2 MG, AS NEEDED
     Route: 048
     Dates: start: 20141205
  6. ENALAPRIL [Concomitant]
     Active Substance: ENALAPRIL
     Indication: HYPERTENSION
     Dosage: 2.5 MG, DAILY
     Route: 048
     Dates: start: 20150526
  7. OMEPRAZOL [Concomitant]
     Active Substance: OMEPRAZOLE
     Indication: PROPHYLAXIS
     Dosage: 40 MG, AS NEEDED
     Route: 048
     Dates: start: 20130315
  8. CLONAZEPAM. [Concomitant]
     Active Substance: CLONAZEPAM
     Indication: RESTLESS LEGS SYNDROME
     Dosage: 0.5 MG, AS NEEDED
     Route: 048
     Dates: start: 20140818
  9. FERROUS SULFATE. [Concomitant]
     Active Substance: FERROUS SULFATE
     Indication: ANAEMIA
     Dosage: 125 MG, 2X/DAY
     Route: 048
     Dates: start: 20150212
  10. METHOTREXATE SODIUM. [Suspect]
     Active Substance: METHOTREXATE SODIUM
     Dosage: 5 MG, WEEKLY
     Route: 048
     Dates: start: 20150203
  11. TIMOLOL. [Concomitant]
     Active Substance: TIMOLOL
     Indication: CATARACT OPERATION
     Dosage: 1 GTT, 2X/DAY
     Route: 047
     Dates: start: 20140924
  12. PREDNISOLONE. [Concomitant]
     Active Substance: PREDNISOLONE
     Indication: CATARACT OPERATION
     Dosage: 1 GTT, EVERY 4 HRS
     Route: 047
  13. FOLIC ACID. [Concomitant]
     Active Substance: FOLIC ACID
     Indication: RHEUMATOID ARTHRITIS
     Dosage: 10 MG, WEEKLY
     Route: 048
     Dates: start: 20070611
  14. ACETYLSALICYLIC ACID [Concomitant]
     Active Substance: ASPIRIN
     Indication: MYOCARDIAL ISCHAEMIA
     Dosage: 100 MG, DAILY
     Route: 048
     Dates: start: 20100610
  15. PINAVERII BROMIDUM [Concomitant]
     Indication: IRRITABLE BOWEL SYNDROME
     Dosage: 100 MG, AS NEEDED
     Route: 048
     Dates: start: 20150518
  16. PREGABALIN. [Concomitant]
     Active Substance: PREGABALIN
     Indication: POST HERPETIC NEURALGIA
     Dosage: 75 MG, AS NEEDED
     Route: 048
     Dates: start: 20140204
  17. PARACETAMOL [Concomitant]
     Active Substance: ACETAMINOPHEN
     Indication: RHEUMATOID ARTHRITIS
     Dosage: 500 MG, AS NEEDED
     Route: 048
     Dates: start: 20071003
  18. PRAVASTATIN. [Concomitant]
     Active Substance: PRAVASTATIN
     Indication: MYOCARDIAL ISCHAEMIA
     Dosage: 20 MG, DAILY
     Route: 048
     Dates: start: 20120403

REACTIONS (2)
  - Colon cancer [Unknown]
  - Thyroid neoplasm [Unknown]

NARRATIVE: CASE EVENT DATE: 20150624
